FAERS Safety Report 10143899 (Version 2)
Quarter: 2014Q2

REPORT INFORMATION
  Report Type: Report from Study
  Country: JP (occurrence: JP)
  Receive Date: 20140430
  Receipt Date: 20140530
  Transmission Date: 20141212
  Serious: Yes (Hospitalization)
  Sender: FDA-Public Use
  Company Number: JP-ASTRAZENECA-2014SE29117

PATIENT
  Age: 23380 Day
  Sex: Male

DRUGS (11)
  1. AZD6140 [Suspect]
     Indication: CORONARY ARTERY DISEASE
     Route: 048
     Dates: start: 20121214, end: 20140424
  2. MAGLAX [Concomitant]
     Indication: CONSTIPATION
     Route: 048
     Dates: start: 20130530
  3. RENIVACE [Concomitant]
     Indication: HYPERTENSION
     Route: 048
  4. D-CHLORPHENIRAMINE MALEATE [Concomitant]
     Indication: SEASONAL ALLERGY
     Route: 048
  5. ARTIST [Concomitant]
     Indication: HYPERTENSION
     Route: 048
  6. FAMOSTAGINE-D [Concomitant]
     Indication: GASTRITIS PROPHYLAXIS
     Route: 048
  7. LIVALO [Concomitant]
     Indication: HYPERCHOLESTEROLAEMIA
     Route: 048
  8. BETAMETHASONE [Concomitant]
     Indication: SEASONAL ALLERGY
     Route: 048
  9. FOLIAMIN [Concomitant]
     Indication: RHEUMATIC DISORDER
     Route: 048
  10. RHEUMATREX [Concomitant]
     Indication: RHEUMATIC DISORDER
     Route: 048
  11. ASA [Concomitant]
     Indication: RHEUMATIC DISORDER
     Route: 048

REACTIONS (1)
  - Anaemia [Recovered/Resolved]
